FAERS Safety Report 20198826 (Version 1)
Quarter: 2021Q4

REPORT INFORMATION
  Report Type: Spontaneous
  Country: PT (occurrence: PT)
  Receive Date: 20211217
  Receipt Date: 20211217
  Transmission Date: 20220303
  Serious: Yes (Hospitalization, Other)
  Sender: FDA-Public Use
  Company Number: PT-Hikma Pharmaceuticals USA Inc.-PT-H14001-21-05293

PATIENT
  Sex: Female

DRUGS (1)
  1. OXYTOCIN [Suspect]
     Active Substance: OXYTOCIN
     Indication: Labour induction
     Dosage: LOW DOSES
     Route: 065

REACTIONS (4)
  - Uterine tachysystole [Recovered/Resolved]
  - Uterine rupture [Recovered/Resolved]
  - Off label use [Unknown]
  - Maternal exposure during delivery [Recovered/Resolved]
